FAERS Safety Report 8242827-4 (Version None)
Quarter: 2012Q1

REPORT INFORMATION
  Report Type: 
  Country: None (occurrence: None)
  Receive Date: 20120329
  Receipt Date: 20120319
  Transmission Date: 20120608
  Serious: Yes (Other)
  Sender: FDA-Public Use
  Company Number: US-SANOFI-AVENTIS-2012SA019855

PATIENT
  Age: 38 Year
  Sex: Female

DRUGS (2)
  1. SEROQUEL [Suspect]
     Indication: BIPOLAR DISORDER
  2. AMBIEN [Suspect]
     Indication: INSOMNIA
     Dates: start: 20020101

REACTIONS (3)
  - GRAND MAL CONVULSION [None]
  - INSOMNIA [None]
  - FEELING ABNORMAL [None]
